FAERS Safety Report 22321522 (Version 1)
Quarter: 2023Q2

REPORT INFORMATION
  Report Type: Spontaneous
  Country: US (occurrence: US)
  Receive Date: 20230515
  Receipt Date: 20230515
  Transmission Date: 20230721
  Serious: Yes (Hospitalization)
  Sender: FDA-Public Use
  Company Number: US-MALLINCKRODT-MNK202301122

PATIENT
  Age: 86 Year
  Sex: Female

DRUGS (2)
  1. CORTICOTROPIN [Suspect]
     Active Substance: CORTICOTROPIN
     Indication: Rheumatoid arthritis
     Dosage: 80 UNITS (1ML), TWO TIMES A WEEK FOR THE FIRST WEEK
     Route: 030
     Dates: start: 202210, end: 2022
  2. CORTICOTROPIN [Suspect]
     Active Substance: CORTICOTROPIN
     Indication: Rheumatoid arthritis
     Dosage: 80 UNITS ONCE A WEEK
     Route: 030
     Dates: start: 2022

REACTIONS (3)
  - Hospitalisation [Not Recovered/Not Resolved]
  - Adverse event [Unknown]
  - Contraindicated product administered [Unknown]
